FAERS Safety Report 9766999 (Version 2)
Quarter: 2013Q4

REPORT INFORMATION
  Report Type: Spontaneous
  Country: US (occurrence: US)
  Receive Date: 20131217
  Receipt Date: 20131217
  Transmission Date: 20140711
  Serious: Yes (Other)
  Sender: FDA-Public Use
  Company Number: US-ENDO PHARMACEUTICALS INC.-OPCR20130394

PATIENT
  Age: 59 Year
  Sex: Female

DRUGS (2)
  1. OPANA ER 20MG [Suspect]
     Indication: PRODUCT USED FOR UNKNOWN INDICATION
     Route: 048
  2. OPANA ER 10MG [Suspect]
     Indication: PAIN
     Route: 048

REACTIONS (3)
  - Myocardial infarction [Unknown]
  - Sinus headache [Not Recovered/Not Resolved]
  - Drug effect decreased [Not Recovered/Not Resolved]
